FAERS Safety Report 6939165-6 (Version None)
Quarter: 2010Q3

REPORT INFORMATION
  Report Type: 
  Country: None (occurrence: None)
  Receive Date: 20100824
  Receipt Date: 20100820
  Transmission Date: 20110219
  Serious: Yes (Other)
  Sender: FDA-Public Use
  Company Number: IE-BRISTOL-MYERS SQUIBB COMPANY-14821409

PATIENT
  Age: 39 Year
  Sex: Female

DRUGS (2)
  1. ABILIFY [Suspect]
     Indication: BIPOLAR DISORDER
     Route: 048
     Dates: start: 20090201
  2. DIAZEPAM [Suspect]
     Indication: ANXIETY
     Dosage: 1 TAB TO 2 TAB PER WEEK;DOSAGE:SEVERAL YRS
     Route: 048

REACTIONS (2)
  - ABORTION SPONTANEOUS [None]
  - PREGNANCY [None]
